FAERS Safety Report 8882386 (Version 4)
Quarter: 2013Q1

REPORT INFORMATION
  Report Type: Spontaneous
  Country: JP (occurrence: JP)
  Receive Date: 20121103
  Receipt Date: 20130123
  Transmission Date: 20140127
  Serious: Yes (Hospitalization)
  Sender: FDA-Public Use
  Company Number: JP-MERCK-1210JPN014431

PATIENT
  Age: 36 Year
  Sex: Female
  Weight: 59.5 kg

DRUGS (9)
  1. GASTER D [Suspect]
     Indication: POSTOPERATIVE CARE
     Dosage: 20 MG, BID
     Route: 048
     Dates: start: 20120707, end: 20120723
  2. CELECOX [Suspect]
     Indication: POSTOPERATIVE CARE
     Dosage: 100 MG, BID
     Route: 048
     Dates: start: 20120707, end: 20120723
  3. PREDONINE [Concomitant]
     Indication: POSTOPERATIVE CARE
     Dosage: UNK
     Dates: start: 2012, end: 20120713
  4. PREDONINE [Concomitant]
     Dosage: 10 MG, QD
     Dates: start: 20120715
  5. PREDNISOLONE SODIUM SUCCINATE [Concomitant]
     Indication: POSTOPERATIVE CARE
     Dosage: UNK
     Dates: start: 20120628, end: 2012
  6. MERISLON [Concomitant]
     Indication: POSTOPERATIVE CARE
     Dosage: UNK
     Dates: start: 20120707, end: 20120723
  7. METHYCOBAL [Concomitant]
     Indication: POSTOPERATIVE CARE
     Dosage: UNK
     Route: 048
     Dates: start: 20120707, end: 20120723
  8. ULTIVA [Concomitant]
     Indication: ANAESTHESIA PROCEDURE
     Dosage: UNK
     Dates: start: 20120628, end: 20120628
  9. PROPOFOL [Concomitant]
     Indication: ANAESTHESIA PROCEDURE
     Dosage: UNK
     Dates: start: 20120628, end: 20120628

REACTIONS (2)
  - Drug eruption [Recovering/Resolving]
  - Intentional drug misuse [Unknown]
